FAERS Safety Report 13540495 (Version 2)
Quarter: 2017Q2

REPORT INFORMATION
  Report Type: Spontaneous
  Country: US (occurrence: US)
  Receive Date: 20170512
  Receipt Date: 20170626
  Transmission Date: 20170830
  Serious: Yes (Hospitalization, Other)
  Sender: FDA-Public Use
  Company Number: US-NOVOPROD-544043

PATIENT
  Age: 84 Year
  Sex: Female
  Weight: 57.6 kg

DRUGS (4)
  1. LANTUS [Suspect]
     Active Substance: INSULIN GLARGINE
     Dosage: AT DAYTIME
     Route: 058
     Dates: start: 201702
  2. NOVOLOG [Suspect]
     Active Substance: INSULIN ASPART
     Dosage: DOSE DECREASED
     Route: 058
     Dates: start: 201702
  3. LANTUS [Suspect]
     Active Substance: INSULIN GLARGINE
     Indication: TYPE 2 DIABETES MELLITUS
     Dosage: AT NIGHT TIME
     Route: 058
     Dates: end: 201702
  4. NOVOLOG [Suspect]
     Active Substance: INSULIN ASPART
     Indication: TYPE 2 DIABETES MELLITUS
     Dosage: SLIDING SCALE
     Route: 058
     Dates: start: 2000, end: 201702

REACTIONS (6)
  - Expired product administered [Not Recovered/Not Resolved]
  - Blood glucose increased [Not Recovered/Not Resolved]
  - Hypoglycaemic unconsciousness [Recovered/Resolved]
  - Hypoglycaemia unawareness [Unknown]
  - Blood pressure systolic increased [Recovered/Resolved]
  - Drug effect delayed [Not Recovered/Not Resolved]

NARRATIVE: CASE EVENT DATE: 20170212
